FAERS Safety Report 24286308 (Version 1)
Quarter: 2024Q3

REPORT INFORMATION
  Report Type: Spontaneous
  Country: GB (occurrence: GB)
  Receive Date: 20240905
  Receipt Date: 20240905
  Transmission Date: 20241016
  Serious: Yes (Other)
  Sender: ELI LILLY AND CO
  Company Number: None

PATIENT
  Age: 28 Year
  Sex: Female
  Weight: 88 kg

DRUGS (1)
  1. MOUNJARO [Suspect]
     Active Substance: TIRZEPATIDE
     Indication: Product used for unknown indication
     Dosage: UNK, UNKNOWN
     Route: 065
     Dates: start: 20240822

REACTIONS (8)
  - Lymphadenopathy [Recovered/Resolved]
  - Pyrexia [Recovering/Resolving]
  - Neck pain [Recovering/Resolving]
  - Arthralgia [Unknown]
  - Headache [Not Recovered/Not Resolved]
  - Sensitive skin [Unknown]
  - Skin discomfort [Unknown]
  - Fatigue [Not Recovered/Not Resolved]

NARRATIVE: CASE EVENT DATE: 20240823
